FAERS Safety Report 5214926-2 (Version None)
Quarter: 2007Q1

REPORT INFORMATION
  Report Type: 
  Country: None (occurrence: None)
  Receive Date: 20070122
  Receipt Date: 20070122
  Transmission Date: 20070707
  Serious: Yes (Other)
  Sender: FDA-Public Use
  Company Number: None

PATIENT
  Age: 45 Year
  Sex: Female
  Weight: 83.9154 kg

DRUGS (4)
  1. NYQUIL M/S COLD/FLU VICKS/PROCTOR+ GAMBLE [Suspect]
     Indication: INFLUENZA
     Dosage: 2 TBSP. JUST ONCE PO
     Route: 048
     Dates: start: 20061223, end: 20061223
  2. NYQUIL M/S COLD/FLU VICKS/PROCTOR+ GAMBLE [Suspect]
     Indication: NASOPHARYNGITIS
     Dosage: 2 TBSP. JUST ONCE PO
     Route: 048
     Dates: start: 20061223, end: 20061223
  3. PLAQUENIL [Concomitant]
  4. MOBIC [Concomitant]

REACTIONS (5)
  - BLOOD PRESSURE DECREASED [None]
  - DIZZINESS [None]
  - ERYTHEMA [None]
  - FLUSHING [None]
  - PRURITUS GENERALISED [None]
